FAERS Safety Report 9361322 (Version 1)
Quarter: 2013Q2

REPORT INFORMATION
  Report Type: Spontaneous
  Country: US (occurrence: US)
  Receive Date: 20130621
  Receipt Date: 20130621
  Transmission Date: 20140414
  Serious: No
  Sender: FDA-Public Use
  Company Number: US-US-EMD SERONO, INC.-7166384

PATIENT
  Age: 55 Year
  Sex: Male
  Weight: 66 kg

DRUGS (2)
  1. REBIF [Suspect]
     Indication: PRODUCT USED FOR UNKNOWN INDICATION
     Route: 058
     Dates: start: 20101202
  2. PRISTIQ [Concomitant]
     Indication: DEPRESSION

REACTIONS (2)
  - Decreased appetite [Unknown]
  - Injection site pain [Not Recovered/Not Resolved]
